FAERS Safety Report 17415984 (Version 1)
Quarter: 2020Q1

REPORT INFORMATION
  Report Type: Spontaneous
  Country: GB (occurrence: GB)
  Receive Date: 20200213
  Receipt Date: 20200213
  Transmission Date: 20200409
  Serious: Yes (Life-Threatening, Hospitalization)
  Sender: FDA-Public Use
  Company Number: GB-MYLANLABS-2020M1015853

PATIENT
  Age: 52 Year
  Sex: Male
  Weight: 100 kg

DRUGS (1)
  1. AZITHROMYCIN ANHYDROUS. [Suspect]
     Active Substance: AZITHROMYCIN ANHYDROUS
     Indication: PROSTATITIS
     Dosage: 1500 MILLIGRAM, QW
     Dates: start: 20191028, end: 20191115

REACTIONS (5)
  - Drug-induced liver injury [Recovering/Resolving]
  - Faeces pale [Recovering/Resolving]
  - Jaundice [Recovering/Resolving]
  - Chromaturia [Recovering/Resolving]
  - Hepatitis cholestatic [Recovering/Resolving]

NARRATIVE: CASE EVENT DATE: 20191105
